FAERS Safety Report 4586508-7 (Version None)
Quarter: 2005Q1

REPORT INFORMATION
  Report Type: 
  Country: None (occurrence: None)
  Receive Date: 20050218
  Receipt Date: 19970326
  Transmission Date: 20050727
  Serious: Yes (Life-Threatening, Hospitalization, Other)
  Sender: FDA-Public Use
  Company Number: JP-SOLVAY-PANC003970006

PATIENT
  Age: 24480 Day
  Sex: Male
  Weight: 42.6 kg

DRUGS (74)
  1. CREON [Suspect]
     Indication: PANCREATITIS CHRONIC
     Dosage: DAILY DOSE: 1.5 GRAM(S)
     Route: 048
     Dates: start: 19961121, end: 19961219
  2. CREON [Suspect]
     Dosage: DAILY DOSE: 3 GRAM(S)
     Route: 048
     Dates: start: 19961220, end: 19970320
  3. ALBUMIN (HUMAN) [Concomitant]
     Indication: OEDEMA
     Dosage: DAILY DOSE: 100 MILLILITRE(S)
     Route: 042
     Dates: start: 19961121, end: 19961121
  4. ALBUMIN (HUMAN) [Concomitant]
     Dosage: DAILY DOSE: 100 MILLILITRE(S)
     Route: 042
     Dates: start: 19961205, end: 19961206
  5. ALBUMIN (HUMAN) [Concomitant]
     Dosage: DAILY DOSE: 100 MILLILITRE(S)
     Route: 042
     Dates: start: 19961218, end: 19961220
  6. ALBUMIN (HUMAN) [Concomitant]
     Dosage: DAILY DOSE: 100 MILLILITRE(S)
     Route: 042
     Dates: start: 19961225, end: 19961227
  7. ALBUMIN (HUMAN) [Concomitant]
     Dosage: DAILY DOSE: 100 MILLILITRE(S)
     Route: 042
     Dates: start: 19970108, end: 19970110
  8. ALBUMIN (HUMAN) [Concomitant]
     Dosage: DAILY DOSE: 100 MILLILITRE(S)
     Route: 042
     Dates: start: 19970116, end: 19970118
  9. ALBUMIN (HUMAN) [Concomitant]
     Dosage: DAILY DOSE: 100 MILLILITRE(S)
     Route: 042
     Dates: start: 19970127, end: 19970130
  10. ALBUMIN (HUMAN) [Concomitant]
     Dosage: DAILY DOSE: 100 MILLILITRE(S)
     Route: 042
     Dates: start: 19970204, end: 19970206
  11. ALBUMIN (HUMAN) [Concomitant]
     Dosage: DAILY DOSE: 100 MILLILITRE(S)
     Route: 042
     Dates: start: 19970219, end: 19970221
  12. ALBUMIN (HUMAN) [Concomitant]
     Dosage: DAILY DOSE: 100 MILLILITRE(S)
     Route: 042
     Dates: start: 19970304, end: 19970307
  13. ALBUMIN (HUMAN) [Concomitant]
     Dosage: DAILY DOSE: 100 MILLILITRE(S)
     Route: 042
     Dates: start: 19970319, end: 19970320
  14. SOLITA-T NO.3 [Concomitant]
     Indication: MALNUTRITION
     Dosage: DAILY DOSE: 500 MILLILITRE(S)
     Route: 042
     Dates: start: 19970127, end: 19970127
  15. SOLITA-T NO.3 [Concomitant]
     Dosage: DAILY DOSE: 500 MILLILITRE(S)
     Route: 042
     Dates: start: 19970129, end: 19970129
  16. MORIPRON F [Concomitant]
     Indication: MALNUTRITION
     Dosage: DAILY DOSE: 300 MILLILITRE(S)
     Route: 042
     Dates: start: 19970127, end: 19970127
  17. MORIPRON F [Concomitant]
     Dosage: DAILY DOSE: 300 MILLILITRE(S)
     Route: 042
     Dates: start: 19970129, end: 19970129
  18. NEOLAMIN MULTI [Concomitant]
     Indication: MALNUTRITION
     Dosage: DAILY DOSE: UNK. FREQUENCY:UNKNOWN
     Route: 042
     Dates: start: 19970127, end: 19970127
  19. NEOLAMIN MULTI [Concomitant]
     Dosage: DAILY DOSE:  UNKNOWN
     Route: 042
     Dates: start: 19970129, end: 19970129
  20. NEOLAMIN MULTI [Concomitant]
     Dosage: DAILY DOSE:  UNKNOWN
     Route: 042
     Dates: start: 19970131, end: 19970207
  21. NEOLAMIN MULTI [Concomitant]
     Dosage: DAILY DOSE:  UNKNOWN
     Route: 042
     Dates: start: 19970210, end: 19970214
  22. NEOLAMIN MULTI [Concomitant]
     Dosage: DAILY DOSE:  UNKNOWN
     Route: 042
     Dates: start: 19970217, end: 19970221
  23. NEOLAMIN MULTI [Concomitant]
     Dosage: DAILY DOSE:  UNKNOWN
     Route: 042
     Dates: start: 19970224, end: 19970228
  24. NEOLAMIN MULTI [Concomitant]
     Dosage: DAILY DOSE:  UNKNOWN
     Route: 042
     Dates: start: 19970303, end: 19970307
  25. NEOLAMIN MULTI [Concomitant]
     Dosage: DAILY DOSE:  UNKNOWN
     Route: 042
     Dates: start: 19970310, end: 19970314
  26. NEOLAMIN MULTI [Concomitant]
     Dosage: DAILY DOSE:  UNKNOWN
     Route: 042
     Dates: start: 19970317, end: 19970320
  27. PN-TWIN-2 [Concomitant]
     Indication: MALNUTRITION
     Dosage: DAILY DOSE: 1000 MILLILITRE(S)
     Route: 042
     Dates: start: 19970131, end: 19970207
  28. PN-TWIN-2 [Concomitant]
     Dosage: DAILY DOSE: 1000 MILLILITRE(S)
     Route: 042
     Dates: start: 19970210, end: 19970214
  29. PN-TWIN-2 [Concomitant]
     Dosage: DAILY DOSE: 1000 MILLILITRE(S)
     Route: 042
     Dates: start: 19970217, end: 19970221
  30. PN-TWIN-2 [Concomitant]
     Dosage: DAILY DOSE: 1000 MILLILITRE(S)
     Route: 042
     Dates: start: 19970224, end: 19970228
  31. PN-TWIN-2 [Concomitant]
     Dosage: DAILY DOSE: 1000 MILLILITRE(S)
     Route: 042
     Dates: start: 19970303, end: 19970307
  32. PN-TWIN-2 [Concomitant]
     Dosage: DAILY DOSE: 1000 MILLILITRE(S)
     Route: 042
     Dates: start: 19970310, end: 19970314
  33. PN-TWIN-2 [Concomitant]
     Dosage: DAILY DOSE: 1000 MILLILITRE(S)
     Route: 042
     Dates: start: 19970317, end: 19970320
  34. INTRALIPOS 20% [Concomitant]
     Indication: MALNUTRITION
     Dosage: DAILY DOSE: 200 MILLILITRE(S)
     Route: 042
     Dates: start: 19970128, end: 19970128
  35. INTRALIPOS 20% [Concomitant]
     Dosage: DAILY DOSE: 100 MILLILITRE(S)
     Route: 042
     Dates: start: 19970217, end: 19970217
  36. INTRALIPOS 20% [Concomitant]
     Dosage: DAILY DOSE: 100 MILLILITRE(S)
     Route: 042
     Dates: start: 19970219, end: 19970219
  37. INTRALIPOS 20% [Concomitant]
     Dosage: DAILY DOSE: 100 MILLILITRE(S)
     Route: 042
     Dates: start: 19970221, end: 19970221
  38. INTRALIPOS 20% [Concomitant]
     Dosage: DAILY DOSE: 100 MILLILITRE(S)
     Route: 042
     Dates: start: 19970224, end: 19970224
  39. INTRALIPOS 20% [Concomitant]
     Dosage: DAILY DOSE: 100 MILLILITRE(S)
     Route: 042
     Dates: start: 19970226, end: 19970226
  40. INTRALIPOS 20% [Concomitant]
     Dosage: DAILY DOSE: 100 MILLILITRE(S)
     Route: 042
     Dates: start: 19970228, end: 19970228
  41. INTRALIPOS 20% [Concomitant]
     Dosage: DAILY DOSE: 100 MILLILITRE(S)
     Route: 042
     Dates: start: 19970303, end: 19970303
  42. INTRALIPOS 20% [Concomitant]
     Dosage: DAILY DOSE: 100 MILLILITRE(S)
     Route: 042
     Dates: start: 19970305, end: 19970305
  43. INTRALIPOS 20% [Concomitant]
     Dosage: DAILY DOSE: 200 MILLILITRE(S)
     Route: 042
     Dates: start: 19970310, end: 19970310
  44. INTRALIPOS 20% [Concomitant]
     Dosage: DAILY DOSE: 200 MILLILITRE(S)
     Route: 042
     Dates: start: 19970312, end: 19970312
  45. INTRALIPOS 20% [Concomitant]
     Dosage: DAILY DOSE: 200 MILLILITRE(S)
     Route: 042
     Dates: start: 19970314, end: 19970314
  46. INTRALIPOS 20% [Concomitant]
     Dosage: DAILY DOSE: 200 MILLILITRE(S)
     Route: 042
     Dates: start: 19970317, end: 19970317
  47. INTRALIPOS 20% [Concomitant]
     Dosage: DAILY DOSE: 200 MILLILITRE(S)
     Route: 042
     Dates: start: 19970319, end: 19970319
  48. LASIX [Concomitant]
     Indication: OEDEMA
     Dosage: DAILY DOSE: 20 MILLIGRAM(S)
     Route: 042
     Dates: start: 19970128, end: 19970128
  49. LASIX [Concomitant]
     Dosage: DAILY DOSE: 40 MILLILITRE(S)
     Route: 042
     Dates: start: 19970129, end: 19970130
  50. LASIX [Concomitant]
     Dosage: DAILY DOSE: 20 MILLIGRAM(S)
     Route: 042
     Dates: start: 19970131, end: 19970202
  51. LASIX [Concomitant]
     Dosage: DAILY DOSE: 20 MILLIGRAM(S)
     Route: 042
     Dates: start: 19970210, end: 19970214
  52. LASIX [Concomitant]
     Dosage: DAILY DOSE: 20 MILLIGRAM(S)
     Route: 042
     Dates: start: 19970225, end: 19970228
  53. LASIX [Concomitant]
     Dosage: DAILY DOSE: 20 MILLIGRAM(S)
     Route: 042
     Dates: start: 19970304, end: 19970307
  54. LASIX [Concomitant]
     Dosage: DAILY DOSE: 40 MILLIGRAM(S)
     Route: 048
     Dates: start: 19970311, end: 19970320
  55. ELEMENMIC [Concomitant]
     Indication: MALNUTRITION
     Dosage: DAILY DOSE: 1 DF. FREQUENCY:UNKNOWN
     Route: 042
     Dates: start: 19970217, end: 19970221
  56. FESIN [Concomitant]
     Indication: MALNUTRITION
     Dosage: DAILY DOSE: 1 DOSAGE FORM
     Route: 042
     Dates: start: 19970226, end: 19970228
  57. FESIN [Concomitant]
     Dosage: DAILY DOSE: 1 DOSAGE FORM
     Route: 042
     Dates: start: 19970303, end: 19970307
  58. FESIN [Concomitant]
     Dosage: DAILY DOSE: 1 DOSAGE FORM
     Route: 042
     Dates: start: 19970311, end: 19970314
  59. FESIN [Concomitant]
     Dosage: DAILY DOSE: 1 DOSAGE FORM
     Route: 042
     Dates: start: 19970317, end: 19970320
  60. GLUCOSE [Concomitant]
     Indication: MALNUTRITION
     Dosage: DAILY DOSE: 500 MILLILITRE(S)
     Route: 042
     Dates: start: 19961203, end: 19961203
  61. GLUCOSE [Concomitant]
     Dosage: DAILY DOSE: 20 MILLILITRE(S)
     Route: 042
     Dates: start: 19970303, end: 19970307
  62. GLUCOSE [Concomitant]
     Dosage: DAILY DOSE: 20 MILLILITRE(S)
     Route: 042
     Dates: start: 19970311, end: 19970314
  63. GLUCOSE [Concomitant]
     Dosage: DAILY DOSE: 20 MILLILITRE(S)
     Route: 042
     Dates: start: 19970317, end: 19970320
  64. GLYCERIN [Concomitant]
     Indication: ABDOMINAL DISTENSION
     Dosage: DAILY DOSE:  UNKNOWN; 200 ML AS NEEDED
     Route: 054
     Dates: start: 19961121, end: 19970320
  65. MAGNESIUM OXIDE [Concomitant]
     Indication: ABDOMINAL DISTENSION
     Dosage: DAILY DOSE:  UNKNOWN; 3.0 G AS NEEDED
     Route: 054
     Dates: start: 19961121, end: 19970320
  66. SELBEX [Concomitant]
     Indication: PROPHYLAXIS
     Dosage: DAILY DOSE: 1.5 GRAM(S)
     Route: 048
     Dates: start: 19961125, end: 19961209
  67. SHO-KENCHU-TO [Concomitant]
     Indication: MALAISE
     Dosage: DAILY DOSE: 7.5 GRAM(S)
     Route: 048
     Dates: start: 19970314, end: 19970320
  68. SOLITAX-H [Concomitant]
     Indication: MALNUTRITION
     Dosage: DAILY DOSE: 1000 MILLILITRE(S)
     Route: 042
     Dates: start: 19961203, end: 19961203
  69. SOLITAX-H [Concomitant]
     Dosage: DAILY DOSE: 500 MILLILITRE(S)
     Route: 042
     Dates: start: 19961204, end: 19961204
  70. ATARAX [Concomitant]
     Indication: PROPHYLAXIS
     Dosage: DAILY DOSE: 1 DOSAGE FORM
     Route: 042
     Dates: start: 19961203, end: 19961203
  71. FUTHAN [Concomitant]
     Indication: PROPHYLAXIS
     Dosage: DAILY DOSE: 10 MILLIGRAM(S)
     Route: 042
     Dates: start: 19961203, end: 19961204
  72. CEFOPERAZONE SODIUM [Concomitant]
     Indication: PROPHYLAXIS
     Dosage: DAILY DOSE: 1 GRAM(S)
     Route: 042
     Dates: start: 19961203, end: 19961204
  73. SODIUM CHLORIDE [Concomitant]
     Indication: PROPHYLAXIS
     Dosage: DAILY DOSE: 100 MILLILITRE(S)
     Route: 042
     Dates: start: 19961203, end: 19961204
  74. POTASSIUM CHLORIDE [Concomitant]
     Indication: MALNUTRITION
     Dosage: DAILY DOSE: 40 DOSAGE FORM
     Route: 042
     Dates: start: 19970217, end: 19970217

REACTIONS (10)
  - ABDOMINAL DISTENSION [None]
  - BLOOD PHOSPHORUS DECREASED [None]
  - BLOOD POTASSIUM DECREASED [None]
  - BRAIN CONTUSION [None]
  - CEREBRAL HAEMORRHAGE [None]
  - FALL [None]
  - LOSS OF CONSCIOUSNESS [None]
  - MALAISE [None]
  - MALNUTRITION [None]
  - MINERAL METABOLISM DISORDER [None]
